FAERS Safety Report 6960798-5 (Version None)
Quarter: 2010Q3

REPORT INFORMATION
  Report Type: 
  Country: None (occurrence: None)
  Receive Date: 20100901
  Receipt Date: 20100804
  Transmission Date: 20110219
  Serious: Yes (Other)
  Sender: FDA-Public Use
  Company Number: JP-PFIZER INC-2010097838

PATIENT
  Age: 75 Year

DRUGS (6)
  1. CELECOX [Suspect]
     Dosage: 100 MG, 1X/DAY
     Route: 048
     Dates: start: 20100626, end: 20100701
  2. LIPITOR [Concomitant]
     Dosage: 10 MG, UNK
     Dates: start: 20100202
  3. THYRADIN [Concomitant]
     Dosage: UNK
     Route: 048
  4. OLMESARTAN MEDOXOMIL [Concomitant]
     Dosage: UNK
     Route: 048
  5. ARICEPT [Concomitant]
     Dosage: UNK
     Route: 048
  6. MENESIT [Concomitant]
     Dosage: UNK
     Route: 048

REACTIONS (1)
  - URINARY RETENTION [None]
